FAERS Safety Report 4492059-0 (Version None)
Quarter: 2004Q4

REPORT INFORMATION
  Report Type: 
  Country: None (occurrence: None)
  Receive Date: 20041101
  Receipt Date: 20041020
  Transmission Date: 20050328
  Serious: Yes (Other)
  Sender: FDA-Public Use
  Company Number: HQWYE007922OCT04

PATIENT
  Age: 5 Month
  Sex: Male

DRUGS (2)
  1. AMIODARONE HCL [Suspect]
  2. PROPRANOLOL [Concomitant]

REACTIONS (6)
  - BRAIN NEOPLASM [None]
  - CARDIAC ARREST [None]
  - CARDIAC NEOPLASM UNSPECIFIED [None]
  - DEVELOPMENTAL COORDINATION DISORDER [None]
  - DRUG INEFFECTIVE [None]
  - VENTRICULAR TACHYCARDIA [None]
